FAERS Safety Report 11124133 (Version 2)
Quarter: 2015Q2

REPORT INFORMATION
  Report Type: Report from Study
  Country: US (occurrence: US)
  Receive Date: 20150520
  Receipt Date: 20150520
  Transmission Date: 20150821
  Serious: Yes (Congenital Anomaly, Other)
  Sender: FDA-Public Use
  Company Number: US-AUROBINDO-AUR-APL-2015-04379

PATIENT

DRUGS (1)
  1. LAMOTRIGINE. [Suspect]
     Active Substance: LAMOTRIGINE
     Indication: CONVULSION PROPHYLAXIS
     Route: 064

REACTIONS (2)
  - Foetal exposure during pregnancy [Unknown]
  - Multiple congenital abnormalities [Unknown]
